FAERS Safety Report 17951103 (Version 1)
Quarter: 2020Q2

REPORT INFORMATION
  Report Type: Spontaneous
  Country: US (occurrence: US)
  Receive Date: 20200626
  Receipt Date: 20200626
  Transmission Date: 20200714
  Serious: Yes (Other)
  Sender: FDA-Public Use
  Company Number: US-GILEAD-2020-0475616

PATIENT
  Age: 57 Year
  Sex: Female
  Weight: 118 kg

DRUGS (17)
  1. SODIUM CHLORIDE. [Concomitant]
     Active Substance: SODIUM CHLORIDE
  2. MORPHINE [Concomitant]
     Active Substance: MORPHINE
  3. REMDESIVIR. [Suspect]
     Active Substance: REMDESIVIR
     Indication: COVID-19
     Dosage: 100 MG, QD
     Route: 042
     Dates: start: 20200607, end: 20200610
  4. AZITHROMYCIN ANHYDROUS. [Concomitant]
     Active Substance: AZITHROMYCIN ANHYDROUS
  5. CEFTRIAXONE. [Concomitant]
     Active Substance: CEFTRIAXONE
  6. TEMAZEPAM. [Concomitant]
     Active Substance: TEMAZEPAM
  7. BISACODYL. [Concomitant]
     Active Substance: BISACODYL
  8. CYCLOBENZAPRINE. [Concomitant]
     Active Substance: CYCLOBENZAPRINE
  9. ENOXAPARIN [Concomitant]
     Active Substance: ENOXAPARIN
  10. PREDNISONE. [Concomitant]
     Active Substance: PREDNISONE
  11. DOCUSATE [Concomitant]
     Active Substance: DOCUSATE
  12. BENZONATATE. [Concomitant]
     Active Substance: BENZONATATE
  13. FAMOTIDINE. [Concomitant]
     Active Substance: FAMOTIDINE
  14. GABAPENTIN. [Concomitant]
     Active Substance: GABAPENTIN
  15. GUAIFENESIN. [Concomitant]
     Active Substance: GUAIFENESIN
  16. ORPHENADRINE [Concomitant]
     Active Substance: ORPHENADRINE
  17. HYDROCODONE BITARTRATE AND ACETAMINOPHEN [Concomitant]
     Active Substance: ACETAMINOPHEN\HYDROCODONE BITARTRATE

REACTIONS (1)
  - Glomerular filtration rate decreased [Recovered/Resolved]

NARRATIVE: CASE EVENT DATE: 20200611
